FAERS Safety Report 8195824-1 (Version None)
Quarter: 2012Q1

REPORT INFORMATION
  Report Type: 
  Country: None (occurrence: None)
  Receive Date: 20120308
  Receipt Date: 20120305
  Transmission Date: 20120608
  Serious: Yes (Other)
  Sender: FDA-Public Use
  Company Number: BR-PFIZER INC-2012041741

PATIENT
  Age: 53 Year
  Sex: Female
  Weight: 69 kg

DRUGS (5)
  1. VARENICLINE TARTRATE [Suspect]
     Indication: SMOKING CESSATION THERAPY
     Dosage: 2 TABLET, 1X/DAY
     Route: 048
     Dates: start: 20120214, end: 20120221
  2. DIOVAN HCT [Concomitant]
     Indication: HYPERTENSION
     Dosage: 2 TABLETS, 1X/DAY
     Dates: start: 20080101
  3. DIAZEPAM [Concomitant]
     Indication: HYPERTENSION
     Dosage: UNK
  4. DIOVAN [Concomitant]
     Dosage: UNK
  5. VARENICLINE TARTRATE [Suspect]
     Dosage: 1 MG, 2X/DAY (1MG IN THE MORNING AND 1MG AT NIGHT)
     Route: 048
     Dates: start: 20120222

REACTIONS (15)
  - HYPERTENSION [None]
  - DIZZINESS [None]
  - DECREASED INTEREST [None]
  - ORAL DISCOMFORT [None]
  - AFFECTIVE DISORDER [None]
  - SOMNOLENCE [None]
  - ABNORMAL DREAMS [None]
  - LETHARGY [None]
  - ANXIETY [None]
  - BLOOD PRESSURE FLUCTUATION [None]
  - NERVOUSNESS [None]
  - HEADACHE [None]
  - INSOMNIA [None]
  - DEPRESSED MOOD [None]
  - APATHY [None]
